FAERS Safety Report 5189024-7 (Version None)
Quarter: 2006Q4

REPORT INFORMATION
  Report Type: 
  Country: None (occurrence: None)
  Receive Date: 20061215
  Receipt Date: 20061201
  Transmission Date: 20070319
  Serious: Yes (Hospitalization)
  Sender: FDA-Public Use
  Company Number: CERZ-11427

PATIENT
  Age: 18 Year
  Sex: Female
  Weight: 46.8 kg

DRUGS (1)
  1. CEREZYME [Suspect]
     Indication: GAUCHER'S DISEASE
     Dosage: 55 U/KG Q2WKS IV
     Route: 042
     Dates: start: 19970728

REACTIONS (1)
  - BACK PAIN [None]
